FAERS Safety Report 10218697 (Version 2)
Quarter: 2014Q2

REPORT INFORMATION
  Report Type: Spontaneous
  Country: VE (occurrence: VE)
  Receive Date: 20140605
  Receipt Date: 20140617
  Transmission Date: 20141212
  Serious: Yes (Other)
  Sender: FDA-Public Use
  Company Number: PHHY2014VE068301

PATIENT
  Age: 35 Year
  Sex: Male

DRUGS (3)
  1. TEGRETOL [Suspect]
     Indication: MENTAL RETARDATION
     Dosage: 1000 MG, DAILY
     Route: 048
     Dates: start: 1982
  2. TEGRETOL [Suspect]
     Indication: OFF LABEL USE
  3. CARBAMAZEPINE [Suspect]
     Dosage: UNK UKN, UNK

REACTIONS (6)
  - Diabetes mellitus [Not Recovered/Not Resolved]
  - Convulsion [Recovered/Resolved]
  - Gait disturbance [Unknown]
  - Fall [Recovered/Resolved]
  - Fear [Unknown]
  - Speech disorder [Unknown]
